FAERS Safety Report 22268191 (Version 1)
Quarter: 2023Q2

REPORT INFORMATION
  Report Type: Spontaneous
  Country: US (occurrence: None)
  Receive Date: 20230427
  Receipt Date: 20230427
  Transmission Date: 20230721
  Serious: Yes (Hospitalization)
  Sender: FDA-Public Use
  Company Number: None

PATIENT
  Sex: Female

DRUGS (1)
  1. LEDIPASVIR AND SOFOSBUVIR [Suspect]
     Active Substance: LEDIPASVIR\SOFOSBUVIR
     Dosage: OTHER QUANTITY : 400/90;?FREQUENCY : DAILY;?

REACTIONS (2)
  - Cardiac failure congestive [None]
  - Condition aggravated [None]
